FAERS Safety Report 7508704-9 (Version None)
Quarter: 2011Q2

REPORT INFORMATION
  Report Type: 
  Country: None (occurrence: None)
  Receive Date: 20110527
  Receipt Date: 20100806
  Transmission Date: 20111010
  Serious: No
  Sender: FDA-Public Use
  Company Number: A0874415A

PATIENT
  Age: 79 Year
  Sex: Male

DRUGS (3)
  1. AZITHROMYCIN [Concomitant]
  2. VENTOLIN [Suspect]
     Indication: CHRONIC OBSTRUCTIVE PULMONARY DISEASE
     Dosage: 1PUFF TWICE PER DAY
     Route: 055
     Dates: start: 20100731
  3. PREDNISOLONE [Concomitant]

REACTIONS (3)
  - DRUG INEFFECTIVE [None]
  - WHEEZING [None]
  - PRODUCT QUALITY ISSUE [None]
